FAERS Safety Report 14652782 (Version 2)
Quarter: 2018Q1

REPORT INFORMATION
  Report Type: Report from Study
  Country: None (occurrence: DE)
  Receive Date: 20180319
  Receipt Date: 20180323
  Transmission Date: 20180509
  Serious: Yes (Death)
  Sender: FDA-Public Use
  Company Number: DE-ABBVIE-18K-062-2292424-00

PATIENT
  Sex: Female

DRUGS (1)
  1. DUODOPA [Suspect]
     Active Substance: CARBIDOPA\LEVODOPA
     Indication: PARKINSON^S DISEASE
     Dosage: MD 4 ML; CRD 3.3 ML/ H; CRN 1.8 ML/ H; ED 1.3 ML
     Route: 050
     Dates: start: 20090305, end: 201802

REACTIONS (2)
  - Death [Fatal]
  - Mental fatigue [Fatal]
